FAERS Safety Report 6621691-0 (Version None)
Quarter: 2010Q1

REPORT INFORMATION
  Report Type: 
  Country: None (occurrence: None)
  Receive Date: 20100223
  Receipt Date: 20100106
  Transmission Date: 20100710
  Serious: No
  Sender: FDA-Public Use
  Company Number: 004053

PATIENT
  Sex: Female
  Weight: 59.5 kg

DRUGS (7)
  1. CIMZIA [Suspect]
     Indication: CROHN'S DISEASE
     Dosage: (400 MG EVERY TWO WEEKS SUBCUTANEOUS); SEE IMAGE
     Route: 058
     Dates: start: 20090701, end: 20090901
  2. CIMZIA [Suspect]
     Indication: CROHN'S DISEASE
     Dosage: (400 MG EVERY TWO WEEKS SUBCUTANEOUS); SEE IMAGE
     Route: 058
     Dates: end: 20091001
  3. CIMZIA [Suspect]
     Indication: CROHN'S DISEASE
     Dosage: (400 MG EVERY TWO WEEKS SUBCUTANEOUS); SEE IMAGE
     Route: 058
     Dates: start: 20091001
  4. WELLBUTRIN [Concomitant]
  5. REMICADE [Concomitant]
  6. TRAMADOL HCL [Concomitant]
  7. POTASSIUM CITRATE [Concomitant]

REACTIONS (5)
  - ARTHRALGIA [None]
  - DIARRHOEA [None]
  - INJECTION SITE ERYTHEMA [None]
  - INJECTION SITE NODULE [None]
  - INJECTION SITE PAIN [None]
